FAERS Safety Report 15556539 (Version 2)
Quarter: 2018Q4

REPORT INFORMATION
  Report Type: Spontaneous
  Country: FR (occurrence: FR)
  Receive Date: 20181026
  Receipt Date: 20181031
  Transmission Date: 20190205
  Serious: Yes (Hospitalization)
  Sender: FDA-Public Use
  Company Number: FR-PFIZER INC-2018437879

PATIENT
  Age: 86 Year
  Sex: Female
  Weight: 46 kg

DRUGS (4)
  1. PRINCI B [CYANOCOBALAMIN;PYRIDOXINE HYDROCHLORIDE;THIAMINE MONONITRATE [Suspect]
     Active Substance: CYANOCOBALAMIN\PYRIDOXINE HYDROCHLORIDE\THIAMINE
     Indication: STARVATION
     Dosage: 4 DF, QD
     Route: 048
     Dates: start: 20180902, end: 20180908
  2. VENOFER [Suspect]
     Active Substance: IRON SUCROSE
     Indication: ANAEMIA
     Dosage: THREE AMPOULES EVERY TWO DAYS
     Route: 041
  3. ACIDE FOLIQUE [Suspect]
     Active Substance: FOLIC ACID
     Indication: STARVATION
     Dosage: 10 MG, QD
     Route: 048
     Dates: start: 20180902, end: 20180908
  4. PANTOPRAZOLE [Suspect]
     Active Substance: PANTOPRAZOLE
     Indication: ENTERITIS
     Dosage: 40 MG, QD
     Route: 048
     Dates: start: 20180902, end: 20180910

REACTIONS (2)
  - Eosinophilia [Recovering/Resolving]
  - Toxic skin eruption [Recovering/Resolving]

NARRATIVE: CASE EVENT DATE: 20180906
